FAERS Safety Report 7583962-3 (Version None)
Quarter: 2011Q2

REPORT INFORMATION
  Report Type: 
  Country: None (occurrence: None)
  Receive Date: 20110623
  Receipt Date: 20110609
  Transmission Date: 20111010
  Serious: Yes (Disabling, Other)
  Sender: FDA-Public Use
  Company Number: ABR_00150_2011

PATIENT
  Sex: Female

DRUGS (14)
  1. VANCOMYCIN [Suspect]
     Indication: ACCIDENTAL EXPOSURE
  2. ERYTHROMYCIN [Suspect]
     Indication: ACCIDENTAL EXPOSURE
  3. NARINE /01202601/ [Concomitant]
  4. SIMVASTATIN [Concomitant]
  5. MESALAMINE [Concomitant]
  6. CHLORMEZANONE [Concomitant]
  7. PENTOXIFYLLINE [Concomitant]
  8. RANITIDINE HYDROCHLORIDE [Concomitant]
  9. NITROGLYCERIN [Concomitant]
  10. EZETIMIBE [Concomitant]
  11. STREPTOMYCIN [Suspect]
     Indication: ACCIDENTAL EXPOSURE
     Dosage: (DF)
  12. CYANOCOBALAMIN [Concomitant]
  13. OXYCODONE HCL [Concomitant]
  14. ATENOLOL [Concomitant]

REACTIONS (7)
  - FEELING ABNORMAL [None]
  - HEADACHE [None]
  - LOSS OF CONSCIOUSNESS [None]
  - HEMIPARESIS [None]
  - DIZZINESS [None]
  - CEREBROVASCULAR ACCIDENT [None]
  - BLOOD PRESSURE INCREASED [None]
